FAERS Safety Report 25034271 (Version 1)
Quarter: 2025Q1

REPORT INFORMATION
  Report Type: Spontaneous
  Country: IT (occurrence: IT)
  Receive Date: 20250304
  Receipt Date: 20250304
  Transmission Date: 20250408
  Serious: Yes (Hospitalization)
  Sender: ROCHE
  Company Number: None

PATIENT
  Age: 74 Year
  Sex: Female

DRUGS (1)
  1. TOCILIZUMAB [Suspect]
     Active Substance: TOCILIZUMAB
     Indication: Polymyalgia rheumatica
     Dosage: 162 MG 1 TIME PER WEEK
     Route: 058
     Dates: start: 20241117, end: 20241215

REACTIONS (1)
  - Jaundice cholestatic [Recovered/Resolved with Sequelae]

NARRATIVE: CASE EVENT DATE: 20241207
